FAERS Safety Report 8268144-4 (Version None)
Quarter: 2012Q2

REPORT INFORMATION
  Report Type: 
  Country: None (occurrence: None)
  Receive Date: 20120409
  Receipt Date: 20120404
  Transmission Date: 20120825
  Serious: No
  Sender: FDA-Public Use
  Company Number: US-PFIZER INC-2012051560

PATIENT
  Sex: Female
  Weight: 86.168 kg

DRUGS (6)
  1. SYNTHROID [Concomitant]
     Indication: THYROID DISORDER
     Dosage: UNK
  2. VERAPAMIL [Concomitant]
     Dosage: UNK
  3. CYMBALTA [Concomitant]
     Indication: NEUROPATHY PERIPHERAL
     Dosage: UNK
  4. SIMVASTATIN [Concomitant]
     Indication: BLOOD CHOLESTEROL INCREASED
     Dosage: UNK
  5. LYRICA [Suspect]
     Indication: CHEST PAIN
     Dosage: 150 MG, 3X/DAY
     Route: 048
     Dates: start: 20120201
  6. GABAPENTIN [Suspect]
     Indication: CHEST PAIN
     Dosage: 600 MG, 4X/DAY
     Route: 048
     Dates: end: 20120201

REACTIONS (1)
  - DRUG INEFFECTIVE [None]
